FAERS Safety Report 8795142 (Version 2)
Quarter: 2015Q2

REPORT INFORMATION
  Report Type: Report from Study
  Country: US (occurrence: US)
  Receive Date: 20120917
  Receipt Date: 20150403
  Transmission Date: 20150821
  Serious: Yes (Death, Other)
  Sender: FDA-Public Use
  Company Number: US-ROCHE-1129262

PATIENT
  Age: 46 Year
  Sex: Female
  Weight: 47.22 kg

DRUGS (7)
  1. AVASTIN [Suspect]
     Active Substance: BEVACIZUMAB
     Indication: OVARIAN CANCER
  2. ALIMTA [Concomitant]
     Active Substance: PEMETREXED DISODIUM
     Route: 065
  3. ZOMETA [Concomitant]
     Active Substance: ZOLEDRONIC ACID
     Route: 065
  4. DECADRON [Concomitant]
     Active Substance: DEXAMETHASONE
     Route: 065
  5. GEMCITABINE [Concomitant]
     Active Substance: GEMCITABINE\GEMCITABINE HYDROCHLORIDE
  6. AVASTIN [Suspect]
     Active Substance: BEVACIZUMAB
     Indication: METASTASIS
     Route: 042
     Dates: start: 2009
  7. ZOFRAN [Concomitant]
     Active Substance: ONDANSETRON HYDROCHLORIDE
     Route: 065

REACTIONS (18)
  - Dyspnoea [Unknown]
  - Stomatitis [Unknown]
  - Peripheral swelling [Unknown]
  - Pelvic pain [Recovered/Resolved]
  - Discomfort [Unknown]
  - Night sweats [Unknown]
  - Weight decreased [Unknown]
  - Pericardial effusion malignant [Unknown]
  - Upper respiratory tract infection [Unknown]
  - Cheilitis [Unknown]
  - Paraesthesia [Unknown]
  - Off label use [Unknown]
  - Death [Fatal]
  - Headache [Unknown]
  - Hot flush [Unknown]
  - Pathological fracture [Unknown]
  - Metastatic neoplasm [Unknown]
  - Bone marrow disorder [Unknown]

NARRATIVE: CASE EVENT DATE: 20091208
